FAERS Safety Report 4441258-2 (Version None)
Quarter: 2004Q3

REPORT INFORMATION
  Report Type: 
  Country: None (occurrence: None)
  Receive Date: 20040728
  Receipt Date: 20040312
  Transmission Date: 20050211
  Serious: No
  Sender: FDA-Public Use
  Company Number: USA040361877

PATIENT
  Age: 62 Year
  Sex: Male

DRUGS (14)
  1. STRATTERA [Suspect]
     Indication: ATTENTION DEFICIT/HYPERACTIVITY DISORDER
     Dosage: 80 MG
     Dates: start: 20030801
  2. AFRIN [Concomitant]
  3. AMBIEN [Concomitant]
  4. ANDROGEL [Concomitant]
  5. FOSAMAX [Concomitant]
  6. LOPERAMIDE HCL [Concomitant]
  7. NASOCORT (BUDESONIDE) [Concomitant]
  8. PROVENTIL [Concomitant]
  9. PROVIGIL [Concomitant]
  10. SEREVENT [Concomitant]
  11. SINGULAIR [Concomitant]
  12. TOPAMAX [Concomitant]
  13. ULTRAM [Concomitant]
  14. VIAGRA [Concomitant]

REACTIONS (4)
  - CONTUSION [None]
  - DIARRHOEA [None]
  - DRUG INEFFECTIVE [None]
  - VOMITING [None]
